FAERS Safety Report 11774060 (Version 2)
Quarter: 2015Q4

REPORT INFORMATION
  Report Type: Spontaneous
  Country: US (occurrence: US)
  Receive Date: 20151124
  Receipt Date: 20151204
  Transmission Date: 20160304
  Serious: No
  Sender: FDA-Public Use
  Company Number: US-WATSON-2014-26532

PATIENT
  Age: 78 Year
  Sex: Female

DRUGS (2)
  1. LORAZEPAM (WATSON LABORATORIES) [Suspect]
     Active Substance: LORAZEPAM
     Indication: ANXIETY
     Dosage: 1 DF, QHS
     Route: 048
     Dates: start: 20141201
  2. LORAZEPAM (WATSON LABORATORIES) [Suspect]
     Active Substance: LORAZEPAM
     Indication: INSOMNIA

REACTIONS (1)
  - Drug ineffective [Unknown]

NARRATIVE: CASE EVENT DATE: 20141201
